FAERS Safety Report 14869637 (Version 1)
Quarter: 2018Q2

REPORT INFORMATION
  Report Type: Spontaneous
  Country: US (occurrence: US)
  Receive Date: 20180509
  Receipt Date: 20180509
  Transmission Date: 20180711
  Serious: Yes (Other)
  Sender: FDA-Public Use
  Company Number: US-PFIZER INC-2018184518

PATIENT
  Age: 46 Year
  Sex: Female

DRUGS (2)
  1. NEURONTIN [Suspect]
     Active Substance: GABAPENTIN
     Indication: PAIN
     Dosage: TAKING 300MG OF NEURONTIN FOUR TIMES A DAY
     Dates: start: 2001
  2. NEURONTIN [Suspect]
     Active Substance: GABAPENTIN
     Dosage: DOUBLE HER DOSE IN THE MORNING AND AT NIGHT

REACTIONS (5)
  - Road traffic accident [Unknown]
  - Product use in unapproved indication [Unknown]
  - Injury [Unknown]
  - Drug ineffective [Unknown]
  - Concussion [Unknown]

NARRATIVE: CASE EVENT DATE: 1996
